FAERS Safety Report 8318898-3 (Version None)
Quarter: 2012Q2

REPORT INFORMATION
  Report Type: 
  Country: None (occurrence: None)
  Receive Date: 20120427
  Receipt Date: 20120420
  Transmission Date: 20120825
  Serious: Yes (Other)
  Sender: FDA-Public Use
  Company Number: US-ASTRAZENECA-2012SE20214

PATIENT
  Age: 63 Year
  Sex: Female
  Weight: 62.1 kg

DRUGS (26)
  1. ROPINIROLE [Concomitant]
  2. VALIUM [Concomitant]
  3. SEROQUEL [Suspect]
     Route: 048
  4. VENLAFAXINE [Concomitant]
  5. ADVIR [Concomitant]
     Dosage: 250/50
  6. SEROQUEL [Suspect]
     Indication: BIPOLAR DISORDER
     Route: 048
     Dates: start: 20040101
  7. POT CHLOR ER [Concomitant]
     Route: 048
  8. LOVAZA [Concomitant]
     Route: 048
  9. SEROQUEL [Suspect]
     Route: 048
  10. VICODIN [Concomitant]
  11. EFFEXOR [Concomitant]
  12. PAIN PATCH [Concomitant]
  13. SEROQUEL [Suspect]
     Route: 048
  14. ZOLPIDEM [Concomitant]
     Indication: SLEEP DISORDER
  15. DETROL [Concomitant]
     Route: 048
  16. METFORMIN HCL [Concomitant]
     Dosage: TWO TABLETS BID (TWO TIMES A DAY)
  17. NORCO [Concomitant]
  18. SEROQUEL [Suspect]
     Indication: MENTAL DISORDER
     Route: 048
     Dates: start: 20040101
  19. SEROQUEL [Suspect]
     Dosage: TWICE A DAY
     Route: 048
     Dates: end: 20111001
  20. CLONAZEPAM [Suspect]
     Dosage: 3 TIMES A DAY
     Route: 065
  21. ACETAMINOPHEN AND HYDROCODONE BITARTRATE [Concomitant]
  22. TIZANIDINE HCL [Concomitant]
     Route: 048
  23. SEROQUEL [Suspect]
     Indication: DEPRESSION
     Route: 048
     Dates: start: 20040101
  24. SEROQUEL [Suspect]
     Dosage: TWICE A DAY
     Route: 048
     Dates: end: 20111001
  25. SEROQUEL [Suspect]
     Dosage: TWICE A DAY
     Route: 048
     Dates: end: 20111001
  26. GABAPENTIN [Concomitant]
     Route: 048

REACTIONS (9)
  - HYPERTENSION [None]
  - FIBROMYALGIA [None]
  - OSTEOPOROSIS [None]
  - DEPRESSION [None]
  - DIABETES MELLITUS [None]
  - BLOOD CHOLESTEROL ABNORMAL [None]
  - INTENTIONAL DRUG MISUSE [None]
  - BLOOD CHOLESTEROL INCREASED [None]
  - MALAISE [None]
